FAERS Safety Report 7179894-5 (Version None)
Quarter: 2010Q4

REPORT INFORMATION
  Report Type: 
  Country: None (occurrence: None)
  Receive Date: 20101208
  Receipt Date: 20101119
  Transmission Date: 20110411
  Serious: Yes (Hospitalization, Other)
  Sender: FDA-Public Use
  Company Number: 20100476

PATIENT
  Age: 81 Year
  Sex: Female

DRUGS (13)
  1. VENOFER [Suspect]
     Indication: ANAEMIA
     Dosage: 200 MG X 3 DOSES INTRAVENOUS
     Route: 042
     Dates: start: 20100927, end: 20100929
  2. ACTOS [Concomitant]
  3. LASIX [Concomitant]
  4. ACIDOPHILUS [Concomitant]
  5. POTASSIUM SUPPLEMENTS [Concomitant]
  6. CLOPIDOGREL [Concomitant]
  7. GUAISENESIN [Concomitant]
  8. INSULIN [Concomitant]
  9. NEBULIZER TREATMENTS [Concomitant]
  10. SOTALOL HCL [Concomitant]
  11. SIMVASTATIN [Concomitant]
  12. RAMIPRIL [Concomitant]
  13. CHOLESTYRAMINE [Concomitant]

REACTIONS (5)
  - CARDIAC FAILURE CONGESTIVE [None]
  - CONDITION AGGRAVATED [None]
  - DRUG DOSE OMISSION [None]
  - HYPERHIDROSIS [None]
  - TREATMENT NONCOMPLIANCE [None]
